FAERS Safety Report 25361342 (Version 1)
Quarter: 2025Q2

REPORT INFORMATION
  Report Type: Report from Study
  Country: US (occurrence: US)
  Receive Date: 20250527
  Receipt Date: 20250527
  Transmission Date: 20250716
  Serious: No
  Sender: ACADIA PHARMACEUTICALS
  Company Number: US-ACADIA PHARMACEUTICALS INC.-ACA-2025-PIM-006097

PATIENT
  Sex: Male

DRUGS (18)
  1. NUPLAZID [Suspect]
     Active Substance: PIMAVANSERIN TARTRATE
     Indication: Product used for unknown indication
     Dosage: 34 MILLIGRAM, QD
     Route: 048
  2. TRULICITY [Concomitant]
     Active Substance: DULAGLUTIDE
  3. CARBIDOPA AND LEVODOPA [Concomitant]
     Active Substance: CARBIDOPA\LEVODOPA
  4. CLONAZEPAM [Concomitant]
     Active Substance: CLONAZEPAM
  5. CLOPIDOGREL [Concomitant]
     Active Substance: CLOPIDOGREL BISULFATE
  6. DEXILANT [Concomitant]
     Active Substance: DEXLANSOPRAZOLE
  7. DICYCLOMINE [Concomitant]
     Active Substance: DICYCLOMINE HYDROCHLORIDE
  8. DILANTIN [Concomitant]
     Active Substance: PHENYTOIN
  9. DIVALPROEX SODIUM [Concomitant]
     Active Substance: DIVALPROEX SODIUM
  10. DULOXETINE HYDROCHLORIDE [Concomitant]
     Active Substance: DULOXETINE HYDROCHLORIDE
  11. GEMFIBROZIL [Concomitant]
     Active Substance: GEMFIBROZIL
  12. LEVETIRACETAM [Concomitant]
     Active Substance: LEVETIRACETAM
  13. LYRICA [Concomitant]
     Active Substance: PREGABALIN
  14. OMEPRAZOLE [Concomitant]
     Active Substance: OMEPRAZOLE
  15. ONDANSETRON [Concomitant]
     Active Substance: ONDANSETRON
  16. PROPRANOLOL [Concomitant]
     Active Substance: PROPRANOLOL HYDROCHLORIDE
  17. SIMVASTATIN [Concomitant]
     Active Substance: SIMVASTATIN
  18. SUCRALFATE [Concomitant]
     Active Substance: SUCRALFATE

REACTIONS (3)
  - Drug effect less than expected [Unknown]
  - Inability to afford medication [Unknown]
  - Expired product administered [Unknown]
